FAERS Safety Report 4869101-8 (Version None)
Quarter: 2005Q4

REPORT INFORMATION
  Report Type: 
  Country: None (occurrence: None)
  Receive Date: 20051227
  Receipt Date: 20051213
  Transmission Date: 20060501
  Serious: Yes (Hospitalization, Other)
  Sender: FDA-Public Use
  Company Number: DE-JNJFOC-20051101950

PATIENT
  Age: 24 Year
  Sex: Male

DRUGS (1)
  1. TOPAMAX [Suspect]
     Indication: SIMPLE PARTIAL SEIZURES
     Dosage: ORAL
     Route: 048
     Dates: start: 20050901

REACTIONS (5)
  - BLINDNESS UNILATERAL [None]
  - GLAUCOMA [None]
  - HEADACHE [None]
  - OPTIC ATROPHY [None]
  - VISUAL DISTURBANCE [None]
